FAERS Safety Report 8913409 (Version 1)
Quarter: 2012Q4

REPORT INFORMATION
  Report Type: 
  Country: IT (occurrence: IT)
  Receive Date: 20121116
  Receipt Date: 20121116
  Transmission Date: 20130627
  Serious: Yes (Hospitalization)
  Sender: FDA-Public Use
  Company Number: IT-WATSON-2012-19423

PATIENT
  Age: 82 Year
  Sex: Female

DRUGS (2)
  1. GABAPENTIN (UNKNOWN) [Suspect]
     Indication: DIABETIC NEUROPATHY
     Dosage: 1200 mg, daily
     Route: 048
     Dates: start: 20120601
  2. OXYCODONE [Suspect]
     Indication: DIABETIC NEUROPATHY
     Dosage: 40 mg, daily
     Route: 048
     Dates: start: 20120601

REACTIONS (8)
  - Chorea [Recovered/Resolved]
  - Bronchopneumonia [None]
  - Dyskinesia [None]
  - Orthostatic hypotension [None]
  - Essential hypertension [None]
  - Condition aggravated [None]
  - Renal failure acute [None]
  - Ventricular extrasystoles [None]
